FAERS Safety Report 16135698 (Version 1)
Quarter: 2019Q1

REPORT INFORMATION
  Report Type: Report from Study
  Country: US (occurrence: US)
  Receive Date: 20190329
  Receipt Date: 20190329
  Transmission Date: 20190418
  Serious: Yes (Death)
  Sender: FDA-Public Use
  Company Number: US-EXELIXIS-CABO-19019803

PATIENT
  Age: 61 Year
  Sex: Male

DRUGS (1)
  1. COMETRIQ [Suspect]
     Active Substance: CABOZANTINIB S-MALATE
     Indication: THYROID CANCER
     Dosage: 100 MG, UNK  (1 CAPSULE OF 80 MG AND 1 CAPSULE OF 20 MG)

REACTIONS (1)
  - Death [Fatal]

NARRATIVE: CASE EVENT DATE: 20190325
